FAERS Safety Report 5276963-1 (Version None)
Quarter: 2007Q1

REPORT INFORMATION
  Report Type: 
  Country: None (occurrence: None)
  Receive Date: 20070327
  Receipt Date: 20061222
  Transmission Date: 20070707
  Serious: No
  Sender: FDA-Public Use
  Company Number: US-BRISTOL-MYERS SQUIBB COMPANY-13561121

PATIENT
  Age: 64 Year
  Sex: Male

DRUGS (11)
  1. ORENCIA [Suspect]
     Indication: RHEUMATOID ARTHRITIS
     Route: 042
     Dates: start: 20060525
  2. WARFARIN SODIUM [Concomitant]
     Indication: CEREBROVASCULAR ACCIDENT PROPHYLAXIS
  3. METHIMAZOLE [Concomitant]
     Dates: start: 20040710
  4. TOPROL-XL [Concomitant]
     Indication: BLOOD PRESSURE
  5. LIPITOR [Concomitant]
     Indication: BLOOD CHOLESTEROL INCREASED
  6. PROTONIX [Concomitant]
     Indication: ANTACID THERAPY
  7. METHOTREXATE [Concomitant]
  8. FOLIC ACID [Concomitant]
  9. ANUSOL HC [Concomitant]
     Indication: HAEMORRHOIDS
  10. VICODIN [Concomitant]
     Indication: PAIN
  11. FLECAINIDE ACETATE [Concomitant]
     Indication: ATRIAL FIBRILLATION

REACTIONS (1)
  - SWEAT DISCOLOURATION [None]
